FAERS Safety Report 10609662 (Version 4)
Quarter: 2014Q4

REPORT INFORMATION
  Report Type: Report from Study
  Country: JP (occurrence: JP)
  Receive Date: 20141126
  Receipt Date: 20141217
  Transmission Date: 20150529
  Serious: Yes (Hospitalization, Other)
  Sender: FDA-Public Use
  Company Number: JP-B.I. PHARMACEUTICALS,INC./RIDGEFIELD-2012-BP-22556NB

PATIENT
  Age: 75 Year
  Sex: Male
  Weight: 62 kg

DRUGS (7)
  1. ZYLORIC [Concomitant]
     Active Substance: ALLOPURINOL
     Indication: PRODUCT USED FOR UNKNOWN INDICATION
     Dosage: 100 MG
     Route: 048
  2. ALESION [Concomitant]
     Active Substance: EPINASTINE HYDROCHLORIDE
     Indication: PRODUCT USED FOR UNKNOWN INDICATION
     Dosage: 20 MG
     Route: 048
  3. PRAZAXA [Suspect]
     Active Substance: DABIGATRAN ETEXILATE MESYLATE
     Dosage: 220 MG
     Route: 048
     Dates: start: 20130613
  4. TSURUDEK [Concomitant]
     Indication: PRODUCT USED FOR UNKNOWN INDICATION
     Dosage: 150 MG
     Route: 048
     Dates: end: 20130627
  5. BAYASPIRIN [Concomitant]
     Active Substance: ASPIRIN
     Indication: PROPHYLAXIS
     Dosage: 100 MG
     Route: 048
     Dates: start: 20010320
  6. NIVADIL [Concomitant]
     Active Substance: NILVADIPINE
     Indication: PRODUCT USED FOR UNKNOWN INDICATION
     Dosage: 4 MG
     Route: 048
  7. PRAZAXA [Suspect]
     Active Substance: DABIGATRAN ETEXILATE MESYLATE
     Indication: CEREBROVASCULAR ACCIDENT PROPHYLAXIS
     Dosage: 220 MG
     Route: 048
     Dates: start: 20120425, end: 20130611

REACTIONS (5)
  - Oedema peripheral [Recovered/Resolved]
  - Dementia Alzheimer^s type [Not Recovered/Not Resolved]
  - Sleep apnoea syndrome [Not Recovered/Not Resolved]
  - Cardiac failure congestive [Recovered/Resolved]
  - Atrioventricular block complete [Recovered/Resolved]

NARRATIVE: CASE EVENT DATE: 20120521
